FAERS Safety Report 8393337-5 (Version None)
Quarter: 2012Q2

REPORT INFORMATION
  Report Type: 
  Country: None (occurrence: None)
  Receive Date: 20120529
  Receipt Date: 20120518
  Transmission Date: 20120825
  Serious: Yes (Other)
  Sender: FDA-Public Use
  Company Number: CA-JNJFOC-20120516660

PATIENT
  Sex: Female
  Weight: 55 kg

DRUGS (4)
  1. REMICADE [Suspect]
     Indication: CROHN'S DISEASE
     Route: 042
     Dates: start: 20120417
  2. IMURAN [Concomitant]
  3. REMICADE [Suspect]
     Route: 042
     Dates: start: 20050101
  4. ENTOCORT EC [Concomitant]

REACTIONS (5)
  - NAUSEA [None]
  - MYALGIA [None]
  - INFUSION RELATED REACTION [None]
  - INTESTINAL OBSTRUCTION [None]
  - SQUAMOUS CELL CARCINOMA OF SKIN [None]
